FAERS Safety Report 4947552-0 (Version None)
Quarter: 2006Q1

REPORT INFORMATION
  Report Type: 
  Country: None (occurrence: None)
  Receive Date: 20060314
  Receipt Date: 20060303
  Transmission Date: 20060701
  Serious: Yes (Other)
  Sender: FDA-Public Use
  Company Number: 2006032764

PATIENT
  Age: 45 Year
  Sex: Female
  Weight: 99.7913 kg

DRUGS (4)
  1. NORVASC [Suspect]
     Indication: HYPERTENSION
     Dosage: 10 MG (10 MG,QD INTERVAL: EVERY DAY), ORAL
     Route: 048
     Dates: start: 20060101, end: 20060101
  2. DIOVAN [Concomitant]
  3. VASOTEC [Concomitant]
  4. LOPRESSOR [Concomitant]

REACTIONS (2)
  - CORONARY ARTERY DISEASE [None]
  - OEDEMA PERIPHERAL [None]
